FAERS Safety Report 9708994 (Version 1)
Quarter: 2013Q4

REPORT INFORMATION
  Report Type: Spontaneous
  Country: GB (occurrence: None)
  Receive Date: 20131122
  Receipt Date: 20131122
  Transmission Date: 20140711
  Serious: Yes (Hospitalization)
  Sender: FDA-Public Use
  Company Number: 2023714

PATIENT
  Age: 54 Year
  Sex: Female

DRUGS (4)
  1. DOCETAXEL [Suspect]
     Indication: PRODUCT USED FOR UNKNOWN INDICATION
     Dosage: UNKNOWN, UNKNOWN, UNKNOWN
  2. TRASTUZUMAB [Suspect]
     Indication: HER-2 POSITIVE BREAST CANCER
     Route: 042
     Dates: start: 20120920
  3. TRASTUZUMAB [Suspect]
     Route: 042
     Dates: start: 20120920
  4. PLACEBO [Suspect]
     Indication: HER-2 POSITIVE BREAST CANCER
     Dates: start: 20120920, end: 20120920

REACTIONS (3)
  - Pneumonitis [None]
  - Blood bilirubin increased [None]
  - C-reactive protein increased [None]
